FAERS Safety Report 17562083 (Version 1)
Quarter: 2020Q1

REPORT INFORMATION
  Report Type: Report from Study
  Country: None (occurrence: US)
  Receive Date: 20200319
  Receipt Date: 20200319
  Transmission Date: 20200409
  Serious: Yes (Hospitalization)
  Sender: FDA-Public Use
  Company Number: US-ABBVIE-19K-163-2865572-00

PATIENT
  Age: 65 Year
  Sex: Female
  Weight: 68.1 kg

DRUGS (4)
  1. COREG [Concomitant]
     Active Substance: CARVEDILOL
     Indication: HYPERTENSION
  2. AMLODIPINE [Concomitant]
     Active Substance: AMLODIPINE BESYLATE
     Indication: HYPERTENSION
  3. METHOTREXATE. [Concomitant]
     Active Substance: METHOTREXATE
     Indication: CROHN^S DISEASE
  4. HUMIRA [Suspect]
     Active Substance: ADALIMUMAB
     Indication: CROHN^S DISEASE
     Dosage: CITRATE FREE
     Route: 058
     Dates: end: 201905

REACTIONS (2)
  - Drug ineffective [Not Recovered/Not Resolved]
  - Intestinal stenosis [Recovered/Resolved]

NARRATIVE: CASE EVENT DATE: 201903
